FAERS Safety Report 9863122 (Version 1)
Quarter: 2014Q1

REPORT INFORMATION
  Report Type: Report from Study
  Country: TW (occurrence: TW)
  Receive Date: 20140203
  Receipt Date: 20140203
  Transmission Date: 20141002
  Serious: No
  Sender: FDA-Public Use
  Company Number: PHHY2014TW012566

PATIENT
  Age: 84 Year
  Sex: Female

DRUGS (94)
  1. AMN107 [Suspect]
     Dates: start: 20111123
  2. ACETAMINOPHEN [Concomitant]
     Indication: EYELID DISORDER
     Dates: start: 20120620, end: 20120623
  3. ACETAMINOPHEN [Concomitant]
     Indication: ABDOMINAL PAIN
     Dates: start: 20121223, end: 20121226
  4. ACETYLSALICYLATE [Concomitant]
     Indication: PROPHYLAXIS
     Dates: start: 20111212
  5. ACTRAPID HM//INSULIN HUMAN [Concomitant]
     Indication: DIABETES MELLITUS
     Dates: start: 20121110, end: 20121111
  6. ACTRAPID HM//INSULIN HUMAN [Concomitant]
     Dates: start: 20121130, end: 20121202
  7. ALPRAZOLAM [Concomitant]
     Indication: ADJUSTMENT DISORDER
     Dates: start: 20111221
  8. AMINOL-RF [Concomitant]
     Indication: RENAL FAILURE CHRONIC
     Dates: start: 20121110, end: 20121111
  9. BETAMETHASONE [Concomitant]
     Indication: SEBORRHOEIC DERMATITIS
     Dates: start: 20120118
  10. BROWN MIXTURE [Concomitant]
     Indication: COUGH
     Dates: start: 20121202, end: 20121212
  11. BUSCOPAN [Concomitant]
     Indication: GASTROENTERITIS
     Dates: start: 20121223, end: 20121223
  12. CEFAZOLIN [Concomitant]
     Indication: HEPATITIS ACUTE
     Dates: start: 20121109, end: 20121111
  13. CEFAZOLIN [Concomitant]
     Indication: PREMEDICATION
     Dates: start: 20121130, end: 20121130
  14. CEFLEXIN [Concomitant]
     Indication: EYELID DISORDER
     Dates: start: 20120620, end: 20120623
  15. CELECOXIB [Concomitant]
     Indication: ABDOMINAL PAIN
     Dates: start: 20121104, end: 20121104
  16. CEPHALEXIN [Concomitant]
     Indication: GASTROOESOPHAGEAL REFLUX DISEASE
     Dates: start: 20121112, end: 20121119
  17. CHLORPHENIRAMIN [Concomitant]
     Indication: PROPHYLAXIS
     Dates: start: 20111212, end: 20111212
  18. CHLORPHENIRAMIN [Concomitant]
     Indication: PREMEDICATION
     Dates: start: 20120118, end: 20120118
  19. CHLORPHENIRAMIN [Concomitant]
     Dates: start: 20120215, end: 20120215
  20. CHLORPHENIRAMIN [Concomitant]
     Dates: start: 20120411, end: 20120411
  21. CHLORPHENIRAMIN [Concomitant]
     Dates: start: 20120530, end: 20120530
  22. CHLORPHENIRAMIN [Concomitant]
     Dates: start: 20120718, end: 20120718
  23. CHLORPHENIRAMIN [Concomitant]
     Dates: start: 20121009, end: 20121009
  24. CHLORPHENIRAMIN [Concomitant]
     Dates: start: 20130130, end: 20130130
  25. CHLORPHENIRAMIN [Concomitant]
     Dates: start: 20130514, end: 20130514
  26. CHLORPHENIRAMIN [Concomitant]
     Dates: start: 20130802, end: 20130802
  27. CHLORPHENIRAMIN [Concomitant]
     Dates: start: 20131004, end: 20131004
  28. CLOPIDOGREL [Concomitant]
     Indication: CORONARY ARTERY DISEASE
     Dates: start: 20111207, end: 20111212
  29. DICLOFENAC [Concomitant]
     Indication: WOUND COMPLICATION
     Dates: start: 20121130, end: 20121130
  30. DIPHENHYDRAMINE [Concomitant]
     Indication: PREMEDICATION
     Dates: start: 20120118, end: 20120620
  31. DIPHENHYDRAMINE [Concomitant]
     Indication: URTICARIA
  32. FLUMETHOLON [Concomitant]
     Indication: CONJUNCTIVITIS
     Dates: start: 20120514, end: 20120611
  33. FUROSEMIDE [Concomitant]
     Indication: PREMEDICATION
     Dates: start: 20120118, end: 20120118
  34. FUROSEMIDE [Concomitant]
     Dates: start: 20120215, end: 20120215
  35. FUROSEMIDE [Concomitant]
     Dates: start: 20120411, end: 20120411
  36. FUROSEMIDE [Concomitant]
     Dates: start: 20120530, end: 20120530
  37. FUROSEMIDE [Concomitant]
     Dates: start: 20120718, end: 20120718
  38. FUROSEMIDE [Concomitant]
     Dates: start: 20121009, end: 20121009
  39. FUROSEMIDE [Concomitant]
     Dates: start: 20130130, end: 20130130
  40. FUROSEMIDE [Concomitant]
     Dates: start: 20130514, end: 20130514
  41. FUROSEMIDE [Concomitant]
     Dates: start: 20130802, end: 20130802
  42. FUROSEMIDE [Concomitant]
     Dates: start: 20131004, end: 20131004
  43. GASCON [Concomitant]
     Indication: ABDOMINAL PAIN
     Dates: start: 20121103, end: 20121103
  44. GASCON [Concomitant]
     Dates: start: 20121119, end: 20121203
  45. GENTAMYCIN [Concomitant]
     Indication: EYELID DISORDER
     Dates: start: 20120620, end: 20120627
  46. HYDROCORTISONE [Concomitant]
     Indication: PREMEDICATION
     Dates: start: 20120118, end: 20120118
  47. HYDROCORTISONE [Concomitant]
     Indication: ALLERGY PROPHYLAXIS
     Dates: start: 20120215, end: 20120215
  48. HYDROCORTISONE [Concomitant]
     Dates: start: 20120411, end: 20120411
  49. HYDROCORTISONE [Concomitant]
     Dates: start: 20120530, end: 20120530
  50. HYDROCORTISONE [Concomitant]
     Dates: start: 20120718, end: 20120718
  51. HYDROCORTISONE [Concomitant]
     Dates: start: 20121009, end: 20121009
  52. HYDROCORTISONE [Concomitant]
     Dates: start: 20130130, end: 20130130
  53. HYDROCORTISONE [Concomitant]
     Dates: start: 20130514, end: 20130514
  54. HYDROCORTISONE [Concomitant]
     Dates: start: 20130802, end: 20130802
  55. HYDROCORTISONE [Concomitant]
     Dates: start: 20131004, end: 20131004
  56. ISOSORBID MONONITRATE [Concomitant]
     Indication: PROPHYLAXIS
     Dosage: UNK
     Dates: start: 20111221
  57. ISOSORBIDE DINITRATE [Concomitant]
     Indication: PROPHYLAXIS
     Dates: start: 20111212, end: 20111212
  58. KAOPECTIN [Concomitant]
     Indication: GASTROENTERITIS
     Dates: start: 20121222, end: 20121226
  59. KINGMIN [Concomitant]
     Indication: DRY EYE
     Dates: start: 20120514, end: 20120611
  60. LABETALOL [Concomitant]
     Indication: HYPERTENSION
     Dates: start: 20121223, end: 20121223
  61. LANSOPRAZOLE [Concomitant]
     Indication: GASTROOESOPHAGEAL REFLUX DISEASE
     Dates: start: 20121106, end: 20121112
  62. LANSOPRAZOLE [Concomitant]
     Dates: start: 20121112, end: 20121119
  63. LOPERAMIDE [Concomitant]
     Indication: GASTROENTERITIS
     Dates: start: 20121222, end: 20121222
  64. MAGNESIUM OXIDE [Concomitant]
     Indication: ABDOMINAL PAIN
     Dates: start: 20121103, end: 20121109
  65. MAGNESIUM OXIDE [Concomitant]
     Indication: ABDOMINAL PAIN UPPER
     Dates: start: 20121119, end: 20121212
  66. MEBEVERINE [Concomitant]
     Indication: GASTROENTERITIS
     Dates: start: 20121223, end: 20121226
  67. MEPERIDINE [Concomitant]
     Indication: WOUND COMPLICATION
     Dates: start: 20121130, end: 20121130
  68. MIDAZOLAM [Concomitant]
     Indication: ABDOMINAL PAIN UPPER
     Dates: start: 20121109, end: 20121109
  69. NEOMYCIN [Concomitant]
     Indication: WOUND
     Dates: start: 20130226, end: 20130305
  70. NITROGLYCERIN [Concomitant]
     Indication: PROPHYLAXIS
     Dates: start: 20111207
  71. NORVASC [Concomitant]
     Indication: HYPERTENSION
     Dates: start: 20111211, end: 20111212
  72. NORVASC [Concomitant]
     Dates: start: 20111221
  73. ORPHENADRINE [Concomitant]
     Indication: ADJUSTMENT DISORDER
     Dates: start: 20111221, end: 20120104
  74. PANTOPRAZOLE [Concomitant]
     Indication: GASTROOESOPHAGEAL REFLUX DISEASE
     Dates: start: 20121119, end: 20121203
  75. POLYTAR LIQUID [Concomitant]
     Indication: ECZEMA
     Dosage: UNK
     Dates: start: 20120118
  76. PRIMPERAN [Concomitant]
     Indication: ABDOMINAL PAIN
     Dates: start: 20121103, end: 20121104
  77. PRIMPERAN [Concomitant]
     Indication: GASTROENTERITIS
     Dates: start: 20121222, end: 20121223
  78. RANITIDINE [Concomitant]
     Indication: ABDOMINAL PAIN
     Dates: start: 20121104, end: 20121104
  79. ROSUVASTATIN [Concomitant]
     Indication: HYPERCHOLESTEROLAEMIA
     Dates: start: 20111221
  80. SENOKOT                                 /UNK/ [Concomitant]
     Indication: CONSTIPATION
     Dates: start: 20121103, end: 20121103
  81. SENOKOT                                 /UNK/ [Concomitant]
     Dates: start: 20121110, end: 20121119
  82. SENOKOT                                 /UNK/ [Concomitant]
     Dates: start: 20121201, end: 20121212
  83. SODIUM PHOSPHATE MONOBASIC [Concomitant]
     Indication: CONSTIPATION
     Dates: start: 20121107, end: 20121107
  84. SODIUM PHOSPHATE MONOBASIC [Concomitant]
     Indication: PREMEDICATION
     Dates: start: 20121129, end: 20121129
  85. SUCRALFATE [Concomitant]
     Indication: GASTROOESOPHAGEAL REFLUX DISEASE
     Dates: start: 20121110, end: 20121110
  86. TIMEPIDIUM [Concomitant]
     Indication: ABDOMINAL PAIN UPPER
     Dates: start: 20121119, end: 20121126
  87. TRAMADOL [Concomitant]
     Indication: ABDOMINAL PAIN
     Dates: start: 20121104, end: 20121109
  88. ULTRACET [Concomitant]
     Indication: ABDOMINAL PAIN
     Dates: start: 20121107, end: 20121108
  89. ULTRACET [Concomitant]
     Indication: ABDOMINAL PAIN UPPER
     Dates: start: 20121112, end: 20121119
  90. ULTRACET [Concomitant]
     Dates: start: 20121121, end: 20121128
  91. URSODESOXYCHOLIC ACID [Concomitant]
     Indication: CHOLELITHIASIS
     Dates: start: 20121119, end: 20121203
  92. VALSARTAN [Concomitant]
     Indication: HYPERTENSION
     Dates: start: 20111221
  93. POTASSIUM CHLORIDE [Concomitant]
     Indication: RENAL FAILURE CHRONIC
     Dates: start: 20121110, end: 20121111
  94. POTASSIUM CHLORIDE [Concomitant]
     Dates: start: 20121222, end: 20121223

REACTIONS (1)
  - Dizziness [Unknown]
